FAERS Safety Report 13530745 (Version 1)
Quarter: 2017Q2

REPORT INFORMATION
  Report Type: Spontaneous
  Country: FR (occurrence: FR)
  Receive Date: 20170510
  Receipt Date: 20170510
  Transmission Date: 20170830
  Serious: Yes (Hospitalization)
  Sender: FDA-Public Use
  Company Number: FR-ROCHE-1789874

PATIENT
  Age: 51 Year
  Sex: Female
  Weight: 87 kg

DRUGS (1)
  1. KADCYLA [Suspect]
     Active Substance: ADO-TRASTUZUMAB EMTANSINE
     Indication: HER-2 POSITIVE BREAST CANCER
     Route: 042
     Dates: start: 20151009, end: 20160603

REACTIONS (5)
  - Excessive granulation tissue [Recovered/Resolved]
  - Tongue haemorrhage [Recovered/Resolved with Sequelae]
  - Hyperplasia [Recovered/Resolved]
  - Pyogenic granuloma [Recovered/Resolved]
  - Tongue haemorrhage [Unknown]

NARRATIVE: CASE EVENT DATE: 201606
